FAERS Safety Report 7670058-5 (Version None)
Quarter: 2011Q3

REPORT INFORMATION
  Report Type: 
  Country: None (occurrence: None)
  Receive Date: 20110808
  Receipt Date: 20110729
  Transmission Date: 20111222
  Serious: Yes (Other)
  Sender: FDA-Public Use
  Company Number: JP-AMGEN-KDC433620

PATIENT
  Age: 76 Year
  Sex: Female
  Weight: 35 kg

DRUGS (11)
  1. LEUCOVORIN CALCIUM [Concomitant]
     Route: 041
     Dates: start: 20100629
  2. PANCREAZE [Concomitant]
     Dosage: UNK UNK, UNK
     Route: 048
  3. FLUOROURACIL [Concomitant]
     Dosage: 2000 MG, Q2WK
     Route: 041
     Dates: start: 20100629
  4. PURSENNID [Concomitant]
     Route: 048
  5. OXALIPLATIN [Concomitant]
     Dosage: 60 MG/KG, Q2WK
     Route: 041
     Dates: start: 20100629
  6. FLUOROURACIL [Concomitant]
     Route: 041
     Dates: start: 20100629
  7. ANTIHISTAMINES [Concomitant]
     Dosage: UNK UNK, UNK
     Route: 065
  8. CORTICOSTEROIDS [Concomitant]
     Indication: PROPHYLAXIS
     Route: 065
  9. DEPAS [Concomitant]
     Dosage: UNK UNK, UNK
     Route: 048
  10. LEUCON [Concomitant]
     Indication: NEUTROPENIA
     Dosage: UNK UNK, UNK
     Route: 048
  11. PANITUMUMAB [Suspect]
     Dosage: 6 MG/KG, Q2WK
     Route: 041
     Dates: start: 20100629, end: 20100713

REACTIONS (1)
  - GLOSSITIS [None]
